FAERS Safety Report 23347776 (Version 1)
Quarter: 2023Q4

REPORT INFORMATION
  Report Type: Spontaneous
  Country: CN (occurrence: CN)
  Receive Date: 20231228
  Receipt Date: 20231228
  Transmission Date: 20240110
  Serious: Yes (Hospitalization, Other)
  Sender: FDA-Public Use
  Company Number: CN-009507513-2312CHN008881

PATIENT
  Age: 65 Year
  Sex: Male

DRUGS (3)
  1. CILASTATIN SODIUM\IMIPENEM [Suspect]
     Active Substance: CILASTATIN SODIUM\IMIPENEM
     Indication: Infection
     Dosage: 500 MG, Q12H
     Route: 041
     Dates: start: 20231204, end: 20231213
  2. SODIUM CHLORIDE [Concomitant]
     Active Substance: SODIUM CHLORIDE
     Indication: Medication dilution
     Dosage: 100 ML, BID
     Route: 041
     Dates: start: 20231204, end: 20231213
  3. VANCOMYCIN [Concomitant]
     Active Substance: VANCOMYCIN
     Indication: Infection
     Dosage: 500 MG, QD
     Route: 041
     Dates: start: 20231207, end: 20231216

REACTIONS (6)
  - Epilepsy [Recovering/Resolving]
  - Azotaemia [Unknown]
  - Chronic kidney disease [Unknown]
  - Dry gangrene [Unknown]
  - Procalcitonin increased [Unknown]
  - Status epilepticus [Unknown]

NARRATIVE: CASE EVENT DATE: 20231212
